FAERS Safety Report 7783376-7 (Version None)
Quarter: 2011Q3

REPORT INFORMATION
  Report Type: 
  Country: None (occurrence: None)
  Receive Date: 20110927
  Receipt Date: 20110927
  Transmission Date: 20111222
  Serious: Yes (Other)
  Sender: FDA-Public Use
  Company Number: None

PATIENT
  Age: 42 Year
  Sex: Female

DRUGS (1)
  1. ESTRACE [Suspect]
     Dosage: 1 GRAM VAGINALLY EVERY 7 DAY
     Dates: start: 20110701, end: 20110815

REACTIONS (6)
  - DIZZINESS [None]
  - MEMORY IMPAIRMENT [None]
  - VERTIGO [None]
  - HEART RATE INCREASED [None]
  - CONFUSIONAL STATE [None]
  - NAUSEA [None]
